FAERS Safety Report 7638883-4 (Version None)
Quarter: 2011Q3

REPORT INFORMATION
  Report Type: 
  Country: None (occurrence: None)
  Receive Date: 20110727
  Receipt Date: 20110720
  Transmission Date: 20111222
  Serious: Yes (Hospitalization)
  Sender: FDA-Public Use
  Company Number: FR-KINGPHARMUSA00001-K201100597

PATIENT
  Age: 70 Year
  Sex: Male

DRUGS (4)
  1. ASPIRIN [Concomitant]
  2. METOPROLOL SUCCINATE [Concomitant]
  3. ALTACE [Suspect]
     Indication: HYPERTENSION
     Dosage: 5 MG, BID
     Route: 048
     Dates: start: 20110401
  4. ANTITHROMBOTIC AGENTS [Suspect]

REACTIONS (1)
  - HAEMOPTYSIS [None]
